FAERS Safety Report 7381845-5 (Version None)
Quarter: 2011Q1

REPORT INFORMATION
  Report Type: 
  Country: None (occurrence: None)
  Receive Date: 20110329
  Receipt Date: 20101029
  Transmission Date: 20110831
  Serious: Yes (Life-Threatening, Hospitalization, Other)
  Sender: FDA-Public Use
  Company Number: US-BAYER-200939468NA

PATIENT
  Sex: Female
  Weight: 49.54 kg

DRUGS (12)
  1. YASMIN [Suspect]
     Indication: ACNE
     Route: 048
     Dates: start: 20070829, end: 20071104
  2. ADVIL LIQUI-GELS [Concomitant]
     Dosage: UNK UNK, PRN
     Route: 065
  3. CLONIDINE [Concomitant]
     Indication: ANXIETY
     Dosage: 0.1 MG, QD IN THE MORNING
     Route: 065
     Dates: start: 20030101
  4. UNCODEABLE ^UNCLASSIFIABLE^ [Concomitant]
     Route: 065
     Dates: start: 19910101, end: 20070615
  5. MENINGOCOCCAL POLYSACCHARIDE [Concomitant]
  6. YAZ [Suspect]
     Indication: ACNE
     Route: 048
     Dates: start: 20070829, end: 20071104
  7. YAZ [Suspect]
     Indication: PREMENSTRUAL SYNDROME
  8. CLONIDINE [Concomitant]
     Dosage: 0.05 MG, QD AT NIGHT
  9. UNCODEABLE ^UNCLASSIFIABLE^ [Concomitant]
     Route: 065
     Dates: start: 20080101
  10. ADDERALL 10 [Concomitant]
     Dosage: 30 MG, BID (MORNING / EVENING)
  11. YASMIN [Suspect]
     Indication: PREMENSTRUAL SYNDROME
  12. EFFEXOR XR [Concomitant]
     Indication: DEPRESSED MOOD
     Dosage: 75 MG, BID
     Route: 065
     Dates: start: 20010101

REACTIONS (1)
  - DEEP VEIN THROMBOSIS [None]
